FAERS Safety Report 18110571 (Version 1)
Quarter: 2020Q3

REPORT INFORMATION
  Report Type: Other
  Country: NL (occurrence: NL)
  Receive Date: 20200804
  Receipt Date: 20200804
  Transmission Date: 20201104
  Serious: Yes (Other)
  Sender: FDA-Public Use
  Company Number: NL-ROCHE-2650868

PATIENT

DRUGS (1)
  1. ALECTINIB. [Suspect]
     Active Substance: ALECTINIB
     Indication: NON-SMALL CELL LUNG CANCER
     Route: 065

REACTIONS (9)
  - Oedema [Unknown]
  - Renal failure [Unknown]
  - Rash [Unknown]
  - Hepatotoxicity [Unknown]
  - Gastrointestinal toxicity [Unknown]
  - Myalgia [Unknown]
  - Anaemia [Unknown]
  - Bradycardia [Unknown]
  - Fatigue [Unknown]
